FAERS Safety Report 5621239-3 (Version None)
Quarter: 2008Q1

REPORT INFORMATION
  Report Type: 
  Country: None (occurrence: None)
  Receive Date: 20080114
  Receipt Date: 20070419
  Transmission Date: 20080703
  Serious: Yes (Other)
  Sender: FDA-Public Use
  Company Number: A03200702686

PATIENT
  Age: 75 Year
  Sex: Male
  Weight: 111.11 kg

DRUGS (13)
  1. PLAVIX [Suspect]
     Indication: STENT PLACEMENT
     Dosage: 75 MG QD - ORAL
     Route: 048
     Dates: start: 20050101
  2. OMEPRAZOLE [Concomitant]
  3. LISINOPRIL [Concomitant]
  4. ATORVASTATIN CALCIUM [Concomitant]
  5. VERAPAMIL HYDROCHLORIDE [Concomitant]
  6. ALLOPURINOL [Concomitant]
  7. ASPIRIN [Concomitant]
  8. HYDROCHLOROTHIAZIDE [Concomitant]
  9. CELECOXIB [Concomitant]
  10. PENTOXIFYLLINE [Concomitant]
  11. ASCORBIC ACID [Concomitant]
  12. CENTRUM SILVER [Concomitant]
  13. DIMETHYLGYCINE [Concomitant]

REACTIONS (4)
  - ARTHRITIS [None]
  - PAIN IN EXTREMITY [None]
  - PERIPHERAL ARTERIAL OCCLUSIVE DISEASE [None]
  - POST PROCEDURAL HAEMORRHAGE [None]
